FAERS Safety Report 5556057-8 (Version None)
Quarter: 2007Q4

REPORT INFORMATION
  Report Type: 
  Country: None (occurrence: None)
  Receive Date: 20071211
  Receipt Date: 20071127
  Transmission Date: 20080405
  Serious: Yes (Hospitalization)
  Sender: FDA-Public Use
  Company Number: 2007BI021228

PATIENT
  Age: 46 Year
  Sex: Male

DRUGS (2)
  1. NATALIZUMAB [Suspect]
     Indication: MULTIPLE SCLEROSIS
     Dosage: 300 MG;QM;IV
     Route: 042
     Dates: start: 20070817
  2. AVONEX [Concomitant]

REACTIONS (3)
  - CELLULITIS [None]
  - MUSCULAR WEAKNESS [None]
  - RESPIRATORY DISORDER [None]
